FAERS Safety Report 6836458-8 (Version None)
Quarter: 2010Q3

REPORT INFORMATION
  Report Type: 
  Country: None (occurrence: None)
  Receive Date: 20100708
  Receipt Date: 20100430
  Transmission Date: 20110219
  Serious: Yes (Death, Life-Threatening)
  Sender: FDA-Public Use
  Company Number: PAL-0014-2010

PATIENT
  Age: 50 Year
  Sex: Male

DRUGS (2)
  1. ANTIZOL (FOMEPIZOLE) (UNKNOWN) (FOMEPIZOLE) [Suspect]
     Indication: ACCIDENTAL OVERDOSE
     Dosage: SEE IMAGE
     Route: 042
  2. ANTIZOL (FOMEPIZOLE) (UNKNOWN) (FOMEPIZOLE) [Suspect]
     Indication: LACTIC ACIDOSIS
     Dosage: SEE IMAGE
     Route: 042

REACTIONS (3)
  - CONTINUOUS HAEMODIAFILTRATION [None]
  - RENAL FAILURE [None]
  - RENAL TUBULAR NECROSIS [None]
